FAERS Safety Report 9013724 (Version 1)
Quarter: 2013Q1

REPORT INFORMATION
  Report Type: Spontaneous
  Country: RU (occurrence: RU)
  Receive Date: 20130115
  Receipt Date: 20130115
  Transmission Date: 20140127
  Serious: Yes (Other)
  Sender: FDA-Public Use
  Company Number: RU-BAYER-2013-004677

PATIENT
  Age: 33 Month
  Sex: 0

DRUGS (1)
  1. YAZ [Suspect]

REACTIONS (1)
  - Accidental exposure to product by child [None]
